FAERS Safety Report 24435371 (Version 1)
Quarter: 2024Q4

REPORT INFORMATION
  Report Type: Spontaneous
  Country: FR (occurrence: FR)
  Receive Date: 20241015
  Receipt Date: 20241015
  Transmission Date: 20250114
  Serious: Yes (Other)
  Sender: AUROBINDO
  Company Number: FR-MLMSERVICE-20240924-PI206467-00082-1

PATIENT
  Age: 65 Year
  Sex: Female

DRUGS (7)
  1. CARBOPLATIN [Suspect]
     Active Substance: CARBOPLATIN
     Indication: Pancreatic carcinoma stage IV
     Dosage: UNK UNK, CYCLICAL (THREE CYCLES OF CHEMOTHERAPY EVERY 21 DAYS)
     Route: 065
     Dates: start: 20120403, end: 20120514
  2. CARBOPLATIN [Suspect]
     Active Substance: CARBOPLATIN
     Indication: Pancreatic carcinoma metastatic
  3. CARBOPLATIN [Suspect]
     Active Substance: CARBOPLATIN
     Indication: Neuroendocrine carcinoma of the skin
  4. ETOPOSIDE [Suspect]
     Active Substance: ETOPOSIDE
     Indication: Pancreatic carcinoma stage IV
     Dosage: UNK UNK, CYCLICAL (THREE CYCLES OF CHEMOTHERAPY EVERY 21 DAYS)
     Route: 065
     Dates: start: 20120403, end: 20120514
  5. ETOPOSIDE [Suspect]
     Active Substance: ETOPOSIDE
     Indication: Neuroendocrine carcinoma of the skin
  6. ETOPOSIDE [Suspect]
     Active Substance: ETOPOSIDE
     Indication: Pancreatic carcinoma metastatic
  7. HYDROCHLOROTHIAZIDE\TRIAMTERENE [Concomitant]
     Active Substance: HYDROCHLOROTHIAZIDE\TRIAMTERENE
     Indication: Hypertension
     Dosage: UNK
     Route: 065

REACTIONS (2)
  - Febrile neutropenia [Recovering/Resolving]
  - Clostridium difficile colitis [Recovering/Resolving]

NARRATIVE: CASE EVENT DATE: 20120101
